FAERS Safety Report 26128722 (Version 1)
Quarter: 2025Q4

REPORT INFORMATION
  Report Type: Spontaneous
  Country: EU (occurrence: EU)
  Receive Date: 20251208
  Receipt Date: 20251208
  Transmission Date: 20260118
  Serious: Yes (Hospitalization)
  Sender: BOEHRINGER INGELHEIM
  Company Number: EU-Komodo Health-a23aa000006EbSTAA0

PATIENT
  Age: 72 Year
  Sex: Female

DRUGS (8)
  1. NINTEDANIB [Suspect]
     Active Substance: NINTEDANIB
     Indication: Idiopathic pulmonary fibrosis
     Dates: start: 202402, end: 20250203
  2. NINTEDANIB [Suspect]
     Active Substance: NINTEDANIB
     Dates: start: 202302, end: 202402
  3. BISACODYL [Suspect]
     Active Substance: BISACODYL
     Indication: Drug therapy
  4. MORPHINE [Concomitant]
     Active Substance: MORPHINE
     Indication: Product used for unknown indication
  5. LOPERAMIDE [Concomitant]
     Active Substance: LOPERAMIDE
     Indication: Product used for unknown indication
  6. EDOXABAN [Concomitant]
     Active Substance: EDOXABAN
     Indication: Product used for unknown indication
  7. SOTALOL [Concomitant]
     Active Substance: SOTALOL
     Indication: Product used for unknown indication
  8. DULOXETINE [Concomitant]
     Active Substance: DULOXETINE
     Indication: Product used for unknown indication

REACTIONS (15)
  - Enterocolitis haemorrhagic [Recovered/Resolved]
  - Nausea [Recovered/Resolved]
  - Decreased appetite [Recovered/Resolved]
  - Vomiting [Recovered/Resolved]
  - Diarrhoea [Recovered/Resolved]
  - Constipation [Recovered/Resolved]
  - Diarrhoea [Recovered/Resolved]
  - Bile duct stone [Unknown]
  - Eosinophilia [Unknown]
  - Hypokalaemia [Unknown]
  - Anaemia [Recovered/Resolved]
  - Transaminases increased [Unknown]
  - Colitis [Recovered/Resolved]
  - Diarrhoea [Recovered/Resolved]
  - Weight decreased [Unknown]

NARRATIVE: CASE EVENT DATE: 20230401
